FAERS Safety Report 24745992 (Version 1)
Quarter: 2024Q4

REPORT INFORMATION
  Report Type: Report from Study
  Country: JP (occurrence: JP)
  Receive Date: 20241218
  Receipt Date: 20241218
  Transmission Date: 20250114
  Serious: Yes (Life-Threatening)
  Sender: RECORDATI
  Company Number: JP-RECORDATI RARE DISEASE INC.-2024009834

PATIENT

DRUGS (2)
  1. NEOPROFEN [Suspect]
     Active Substance: IBUPROFEN LYSINE
     Indication: Patent ductus arteriosus
     Dosage: 10 MILLIGRAM/KILOGRAM
     Route: 042
     Dates: start: 20230409, end: 20230409
  2. NEOPROFEN [Suspect]
     Active Substance: IBUPROFEN LYSINE
     Dosage: 5 MILLIGRAM/KILOGRAM
     Route: 042
     Dates: start: 20230410, end: 20230410

REACTIONS (3)
  - Meconium ileus [Recovering/Resolving]
  - Gastrointestinal perforation [Recovering/Resolving]
  - Urine output decreased [Recovering/Resolving]

NARRATIVE: CASE EVENT DATE: 20230412
